FAERS Safety Report 17659661 (Version 3)
Quarter: 2020Q2

REPORT INFORMATION
  Report Type: Report from Study
  Country: None (occurrence: TR)
  Receive Date: 20200413
  Receipt Date: 20200422
  Transmission Date: 20200713
  Serious: Yes (Hospitalization)
  Sender: FDA-Public Use
  Company Number: TR-ABBVIE-20K-161-3360275-00

PATIENT
  Age: 73 Year
  Sex: Female

DRUGS (3)
  1. DUODOPA [Suspect]
     Active Substance: CARBIDOPA\LEVODOPA
     Indication: PARKINSON^S DISEASE
     Dosage: MORNING DOSE(ML):0.00 CONTINUES DOSE(ML):3.30 EXTRA DOSE(ML):1.50
     Route: 050
     Dates: start: 20190708, end: 20200411
  2. DUODOPA [Suspect]
     Active Substance: CARBIDOPA\LEVODOPA
     Dosage: MORNING DOSE(ML):0.00 CONTINUES DOSE(ML):3.10 EXTRA DOSE(ML):1.50
     Route: 050
     Dates: start: 20200411, end: 20200417
  3. DUODOPA [Suspect]
     Active Substance: CARBIDOPA\LEVODOPA
     Dosage: MORNING DOSE(ML):0.00 CONTINUES DOSE(ML):3.30 EXTRA DOSE(ML):1.50
     Route: 050
     Dates: start: 20200417

REACTIONS (12)
  - Altered state of consciousness [Recovered/Resolved]
  - Somnolence [Recovered/Resolved]
  - Dyskinesia [Recovered/Resolved]
  - Agitation [Recovering/Resolving]
  - Muscle spasms [Not Recovered/Not Resolved]
  - Dyspnoea [Recovered/Resolved]
  - Diarrhoea [Recovered/Resolved]
  - Pneumonia [Not Recovered/Not Resolved]
  - Bradykinesia [Not Recovered/Not Resolved]
  - Drooling [Recovered/Resolved]
  - Cerebral vascular occlusion [Recovered/Resolved]
  - Disorientation [Not Recovered/Not Resolved]

NARRATIVE: CASE EVENT DATE: 20200409
